FAERS Safety Report 21882249 (Version 1)
Quarter: 2023Q1

REPORT INFORMATION
  Report Type: Other
  Country: HR (occurrence: HR)
  Receive Date: 20230119
  Receipt Date: 20230119
  Transmission Date: 20230417
  Serious: Yes (Other)
  Sender: FDA-Public Use
  Company Number: HR-CELLTRION INC.-2023HR000478

PATIENT

DRUGS (6)
  1. INFLIXIMAB [Suspect]
     Active Substance: INFLIXIMAB
     Indication: Lung adenocarcinoma
     Dosage: UNK
     Dates: start: 20191121, end: 20191121
  2. INFLIXIMAB [Suspect]
     Active Substance: INFLIXIMAB
     Dosage: 5 MG/KG (300 MG)
     Dates: start: 20191031, end: 20191031
  3. KEYTRUDA [Suspect]
     Active Substance: PEMBROLIZUMAB
     Indication: Lung adenocarcinoma
     Dosage: UNK
     Dates: start: 20220602, end: 20220602
  4. KEYTRUDA [Suspect]
     Active Substance: PEMBROLIZUMAB
     Dosage: UNK
     Dates: start: 20190605, end: 20190605
  5. KEYTRUDA [Suspect]
     Active Substance: PEMBROLIZUMAB
     Dosage: UNK
     Dates: start: 20190424, end: 20190424
  6. KEYTRUDA [Suspect]
     Active Substance: PEMBROLIZUMAB
     Dosage: UNK
     Dates: start: 20190515, end: 20190515

REACTIONS (11)
  - Respiratory failure [Unknown]
  - Malignant neoplasm progression [Unknown]
  - COVID-19 pneumonia [Unknown]
  - Positron emission tomogram abnormal [Unknown]
  - Bone pain [Unknown]
  - Fracture [Unknown]
  - Gastroenteritis [Unknown]
  - Malaise [Unknown]
  - Asthenia [Unknown]
  - Therapy partial responder [Unknown]
  - Off label use [Unknown]

NARRATIVE: CASE EVENT DATE: 20190101
